FAERS Safety Report 24598814 (Version 6)
Quarter: 2025Q4

REPORT INFORMATION
  Report Type: Spontaneous
  Country: US (occurrence: US)
  Receive Date: 20241110
  Receipt Date: 20251128
  Transmission Date: 20260118
  Serious: Yes (Hospitalization, Other)
  Sender: SANOFI AVENTIS
  Company Number: US-SA-2024SA312637

PATIENT
  Age: 40 Year
  Sex: Male

DRUGS (2)
  1. DUPIXENT [Suspect]
     Active Substance: DUPILUMAB
     Indication: Neurodermatitis
     Dosage: 600 MG, 1X
     Route: 058
     Dates: start: 202409, end: 202409
  2. DUPIXENT [Suspect]
     Active Substance: DUPILUMAB
     Dosage: 300 MG, QOW
     Route: 058
     Dates: start: 2024

REACTIONS (19)
  - Pancreatitis chronic [Unknown]
  - Pancreatic carcinoma [Unknown]
  - Weight decreased [Unknown]
  - Constipation [Unknown]
  - Abdominal pain [Unknown]
  - Abdominal pain upper [Unknown]
  - Pancreatitis [Unknown]
  - Circulatory collapse [Unknown]
  - Pancreatic failure [Unknown]
  - Intestinal perforation [Unknown]
  - Sinus disorder [Unknown]
  - Chest pain [Unknown]
  - Joint stiffness [Unknown]
  - Bone pain [Unknown]
  - Dyspnoea [Unknown]
  - Tumour marker increased [Unknown]
  - Fear of injection [Unknown]
  - Malnutrition [Unknown]
  - Therapeutic response unexpected [Unknown]

NARRATIVE: CASE EVENT DATE: 20240101
